FAERS Safety Report 9076054 (Version 1)
Quarter: 2013Q1

REPORT INFORMATION
  Report Type: Spontaneous
  Country: US (occurrence: US)
  Receive Date: 20130129
  Receipt Date: 20130129
  Transmission Date: 20140127
  Serious: Yes (Other)
  Sender: FDA-Public Use
  Company Number: CHPA2013US001732

PATIENT
  Sex: Female

DRUGS (2)
  1. EX-LAX MAX STR LAX PILLS SENNA [Suspect]
     Indication: CONSTIPATION
     Dosage: 2 DF, QD
     Route: 048
     Dates: start: 20130119, end: 20130119
  2. DIURETICS [Concomitant]

REACTIONS (6)
  - Rectal haemorrhage [Recovered/Resolved]
  - Nausea [Recovering/Resolving]
  - Vomiting [Recovering/Resolving]
  - Epigastric discomfort [Recovering/Resolving]
  - Diarrhoea [Recovering/Resolving]
  - Expired drug administered [Unknown]
